FAERS Safety Report 13561644 (Version 2)
Quarter: 2017Q2

REPORT INFORMATION
  Report Type: Spontaneous
  Country: US (occurrence: US)
  Receive Date: 20170518
  Receipt Date: 20170605
  Transmission Date: 20170830
  Serious: Yes (Hospitalization)
  Sender: FDA-Public Use
  Company Number: US-ACTELION-A-US2017-153959

PATIENT
  Age: 49 Year
  Sex: Female
  Weight: 78.91 kg

DRUGS (1)
  1. VELETRI [Suspect]
     Active Substance: EPOPROSTENOL
     Indication: PULMONARY ARTERIAL HYPERTENSION
     Dosage: 37 NG/KG, PER MIN
     Route: 042

REACTIONS (2)
  - Cholecystectomy [Unknown]
  - Gallbladder disorder [Unknown]
